FAERS Safety Report 9230917 (Version 2)
Quarter: 2013Q2

REPORT INFORMATION
  Report Type: Spontaneous
  Country: US (occurrence: None)
  Receive Date: 20121031
  Receipt Date: 20130107
  Transmission Date: 20140414
  Serious: Yes (Other)
  Sender: FDA-Public Use
  Company Number: PHEH2012US011486

PATIENT
  Age: 46 Year
  Sex: Male

DRUGS (4)
  1. GILENYA (FTY) CAPSULE, 0.5MG [Suspect]
     Route: 048
  2. CYMBALTA (DULOXETINE HYDROCHLORIDE) [Concomitant]
  3. PROBIOTICA (LACTOBACILLUS REUTERI) [Concomitant]
  4. OMEPRAZOLE (OMEPRAZOLE) [Concomitant]

REACTIONS (7)
  - Nausea [None]
  - Dizziness [None]
  - Asthenia [None]
  - Heart rate decreased [None]
  - Cold sweat [None]
  - Vertigo [None]
  - Hot flush [None]
